FAERS Safety Report 10050083 (Version 1)
Quarter: 2014Q1

REPORT INFORMATION
  Report Type: Spontaneous
  Country: US (occurrence: None)
  Receive Date: 20140331
  Receipt Date: 20140331
  Transmission Date: 20141002
  Serious: Yes (Life-Threatening, Hospitalization, Disabling, Other)
  Sender: FDA-Public Use
  Company Number: None

PATIENT
  Age: 71 Year
  Sex: Male
  Weight: 99.79 kg

DRUGS (2)
  1. AVASTIN [Suspect]
     Indication: OFF LABEL USE
     Dosage: AVASTIN INJECTION, 14
  2. AVASTIN [Suspect]
     Indication: AGE-RELATED MACULAR DEGENERATION
     Dosage: AVASTIN INJECTION, 14

REACTIONS (5)
  - Age-related macular degeneration [None]
  - Nervous system disorder [None]
  - Product quality issue [None]
  - Retinal degeneration [None]
  - Lacrimal structure injury [None]
